FAERS Safety Report 7083021-2 (Version None)
Quarter: 2010Q4

REPORT INFORMATION
  Report Type: 
  Country: None (occurrence: None)
  Receive Date: 20101026
  Receipt Date: 20101015
  Transmission Date: 20110411
  Serious: Yes (Hospitalization, Other)
  Sender: FDA-Public Use
  Company Number: 2010JP006019

PATIENT
  Age: 58 Year
  Sex: Male

DRUGS (3)
  1. TACROLIMUS [Suspect]
     Indication: HEART TRANSPLANT
  2. AZATHIOPRINE [Suspect]
     Indication: HEART TRANSPLANT
  3. PREDNISONE (PREDNISONE) FORMULATION UNKNOWN [Suspect]
     Indication: HEART TRANSPLANT

REACTIONS (4)
  - FUNGAL PERITONITIS [None]
  - PERITONITIS BACTERIAL [None]
  - RENAL FAILURE CHRONIC [None]
  - VENOUS OCCLUSION [None]
